FAERS Safety Report 6440955-7 (Version None)
Quarter: 2009Q4

REPORT INFORMATION
  Report Type: 
  Country: None (occurrence: None)
  Receive Date: 20091102
  Receipt Date: 20080331
  Transmission Date: 20100525
  Serious: Yes (Other)
  Sender: FDA-Public Use
  Company Number: CART-1000008

PATIENT
  Age: 39 Year
  Sex: Female

DRUGS (1)
  1. CARTICEL [Suspect]
     Indication: CARTILAGE INJURY
     Dosage: 1 NA, ONCE, INTRA-ARTICULAR
     Route: 014
     Dates: start: 20070514, end: 20070514

REACTIONS (2)
  - ARTHROFIBROSIS [None]
  - MENISCUS LESION [None]
